FAERS Safety Report 17711179 (Version 2)
Quarter: 2020Q2

REPORT INFORMATION
  Report Type: Report from Study
  Country: None (occurrence: US)
  Receive Date: 20200427
  Receipt Date: 20200604
  Transmission Date: 20200714
  Serious: Yes (Other)
  Sender: FDA-Public Use
  Company Number: US-ABBVIE-20K-163-3379865-00

PATIENT
  Age: 71 Year
  Sex: Female

DRUGS (1)
  1. HUMIRA [Suspect]
     Active Substance: ADALIMUMAB
     Indication: CROHN^S DISEASE
     Route: 058
     Dates: start: 201909

REACTIONS (6)
  - Cataract [Not Recovered/Not Resolved]
  - Retinal injury [Unknown]
  - Hand deformity [Unknown]
  - Macular degeneration [Not Recovered/Not Resolved]
  - Emotional distress [Unknown]
  - Anger [Unknown]

NARRATIVE: CASE EVENT DATE: 201911
